FAERS Safety Report 9069453 (Version 2)
Quarter: 2013Q2

REPORT INFORMATION
  Report Type: Report from Study
  Country: IT (occurrence: IT)
  Receive Date: 20130215
  Receipt Date: 20130405
  Transmission Date: 20140414
  Serious: Yes (Other)
  Sender: FDA-Public Use
  Company Number: IT-CELGENEUS-083-21880-12113226

PATIENT
  Age: 72 Year
  Sex: Male

DRUGS (3)
  1. REVLIMID [Suspect]
     Indication: PLASMA CELL MYELOMA
     Dosage: 10 MILLIGRAM
     Route: 048
     Dates: start: 20111123, end: 20120505
  2. VELCADE [Concomitant]
     Indication: PLASMA CELL MYELOMA
     Route: 065
     Dates: start: 20120518, end: 20121114
  3. DEXAMETHASONE [Concomitant]
     Indication: PLASMA CELL MYELOMA
     Route: 065
     Dates: start: 20120518, end: 20121114

REACTIONS (1)
  - Colon cancer [Not Recovered/Not Resolved]
